FAERS Safety Report 20392993 (Version 2)
Quarter: 2022Q1

REPORT INFORMATION
  Report Type: Report from Study
  Country: DE (occurrence: DE)
  Receive Date: 20220128
  Receipt Date: 20220201
  Transmission Date: 20220423
  Serious: Yes (Hospitalization)
  Sender: FDA-Public Use
  Company Number: DE-SA-SAC00000000251944

PATIENT
  Age: 44 Year
  Sex: Female
  Weight: 100 kg

DRUGS (7)
  1. ISATUXIMAB [Suspect]
     Active Substance: ISATUXIMAB
     Indication: Plasma cell myeloma
     Dosage: 930 MG, QW
     Route: 042
     Dates: start: 20200810, end: 20201201
  2. LENALIDOMIDE [Suspect]
     Active Substance: LENALIDOMIDE
     Indication: Plasma cell myeloma
     Dosage: 10 MG, QD
     Route: 048
     Dates: start: 20200810, end: 20200810
  3. LENALIDOMIDE [Suspect]
     Active Substance: LENALIDOMIDE
     Dosage: 10 MG,QD
     Route: 048
     Dates: start: 20211226, end: 20211226
  4. BORTEZOMIB [Suspect]
     Active Substance: BORTEZOMIB
     Indication: Plasma cell myeloma
     Dosage: 2.70 MG ON DAY 1, 4, 8, 11, 22, 25, 29, 32
     Route: 058
     Dates: start: 20200810, end: 20200810
  5. BORTEZOMIB [Suspect]
     Active Substance: BORTEZOMIB
     Dosage: 2.70 MG ON DAY 1, 4, 8, 11, 22, 25, 29, 32;
     Route: 058
     Dates: start: 20201204, end: 20201204
  6. DEXAMETHASONE [Suspect]
     Active Substance: DEXAMETHASONE
     Indication: Plasma cell myeloma
     Dosage: 8 MG CYCLE 1, DAY 1/ TREATMENT PHASE (INDUCTION)
     Route: 048
     Dates: start: 20200810, end: 20200810
  7. DEXAMETHASONE [Suspect]
     Active Substance: DEXAMETHASONE
     Dosage: 8 MG D1-2,  4-5,  8-9,  11-12,  15,  22-23,  25-26,  29-30,  32-33)
     Route: 048
     Dates: start: 20201201, end: 20201201

REACTIONS (2)
  - Infection [Recovering/Resolving]
  - Infection [Not Recovered/Not Resolved]

NARRATIVE: CASE EVENT DATE: 20211230
